FAERS Safety Report 18703968 (Version 1)
Quarter: 2021Q1

REPORT INFORMATION
  Report Type: Spontaneous
  Country: US (occurrence: US)
  Receive Date: 20210106
  Receipt Date: 20210106
  Transmission Date: 20210419
  Serious: No
  Sender: FDA-Public Use
  Company Number: US-JNJFOC-20210102990

PATIENT
  Age: 59 Year
  Sex: Female
  Weight: 146.64 kg

DRUGS (17)
  1. RISPERDAL [Suspect]
     Active Substance: RISPERIDONE
     Indication: PRODUCT USED FOR UNKNOWN INDICATION
     Route: 065
  2. MIFEPRISTONE [Suspect]
     Active Substance: MIFEPRISTONE
     Indication: CUSHING^S SYNDROME
     Route: 048
     Dates: start: 20200925, end: 2020
  3. BASAGLAR [Concomitant]
     Active Substance: INSULIN GLARGINE
  4. TRELEGY ELLIPTA [Concomitant]
     Active Substance: FLUTICASONE FUROATE\UMECLIDINIUM BROMIDE\VILANTEROL TRIFENATATE
  5. RISPERDAL [Suspect]
     Active Substance: RISPERIDONE
     Route: 065
  6. ASPRIN [Concomitant]
     Active Substance: ASPIRIN
  7. DULOXETINE. [Concomitant]
     Active Substance: DULOXETINE
  8. LORAZEPAM. [Concomitant]
     Active Substance: LORAZEPAM
  9. HUMALOG [Concomitant]
     Active Substance: INSULIN LISPRO
  10. TRELEGY ELLIPTA [Concomitant]
     Active Substance: FLUTICASONE FUROATE\UMECLIDINIUM BROMIDE\VILANTEROL TRIFENATATE
  11. VITAMIN D [ERGOCALCIFEROL] [Concomitant]
     Active Substance: ERGOCALCIFEROL
  12. ATORVASTATIN [Concomitant]
     Active Substance: ATORVASTATIN
  13. METOPROLOL XL [Concomitant]
     Active Substance: METOPROLOL SUCCINATE
  14. SINEMET [Concomitant]
     Active Substance: CARBIDOPA\LEVODOPA
  15. LISINOPRIL. [Concomitant]
     Active Substance: LISINOPRIL
  16. ALBUTEROL [SALBUTAMOL] [Concomitant]
     Active Substance: ALBUTEROL
  17. FLONASE [Concomitant]
     Active Substance: FLUTICASONE PROPIONATE

REACTIONS (12)
  - Heart rate increased [Unknown]
  - Confusional state [Unknown]
  - Blood glucose fluctuation [Unknown]
  - Diarrhoea [Unknown]
  - Peripheral swelling [Recovering/Resolving]
  - Constipation [Not Recovered/Not Resolved]
  - Blood pressure fluctuation [Unknown]
  - Muscular weakness [Unknown]
  - Blood pressure increased [Unknown]
  - Urinary tract infection [Unknown]
  - Adverse drug reaction [Unknown]
  - Asthenia [Unknown]

NARRATIVE: CASE EVENT DATE: 20201001
